FAERS Safety Report 18646409 (Version 1)
Quarter: 2020Q4

REPORT INFORMATION
  Report Type: Spontaneous
  Country: SE (occurrence: SE)
  Receive Date: 20201222
  Receipt Date: 20201222
  Transmission Date: 20210114
  Serious: Yes (Hospitalization, Other)
  Sender: FDA-Public Use
  Company Number: SE-TEVA-2020-SE-1861771

PATIENT
  Age: 15 Year
  Sex: Female

DRUGS (1)
  1. ISOTRETINOIN ACTAVIS [Suspect]
     Active Substance: ISOTRETINOIN
     Route: 048
     Dates: end: 2020

REACTIONS (1)
  - Fusobacterium infection [Recovered/Resolved]

NARRATIVE: CASE EVENT DATE: 20200225
